FAERS Safety Report 8381531-9 (Version None)
Quarter: 2012Q2

REPORT INFORMATION
  Report Type: 
  Country: None (occurrence: None)
  Receive Date: 20120523
  Receipt Date: 20120509
  Transmission Date: 20120825
  Serious: Yes (Other)
  Sender: FDA-Public Use
  Company Number: SE-CELGENEUS-150-20785-12031225

PATIENT
  Sex: Male
  Weight: 94 kg

DRUGS (6)
  1. MELPHALAN [Suspect]
     Indication: MULTIPLE MYELOMA
     Dosage: 36 MILLIGRAM
     Route: 048
  2. MELPHALAN [Suspect]
     Dosage: 12 MILLIGRAM
     Route: 048
     Dates: start: 20110426
  3. PREDNISONE [Suspect]
     Dosage: 100 MILLIGRAM
     Route: 048
     Dates: start: 20110426
  4. PREDNISONE [Suspect]
     Indication: MULTIPLE MYELOMA
     Dosage: 300 MILLIGRAM
     Route: 048
  5. THALIDOMIDE [Suspect]
     Route: 048
     Dates: start: 20110426
  6. THALIDOMIDE [Suspect]
     Indication: MULTIPLE MYELOMA
     Route: 048

REACTIONS (1)
  - RENAL CANCER [None]
